FAERS Safety Report 4691172-2 (Version None)
Quarter: 2005Q2

REPORT INFORMATION
  Report Type: 
  Country: None (occurrence: None)
  Receive Date: 20050610
  Receipt Date: 20050531
  Transmission Date: 20051028
  Serious: Yes (Hospitalization)
  Sender: FDA-Public Use
  Company Number: 2005073169

PATIENT
  Age: 52 Year
  Sex: Male

DRUGS (8)
  1. ZYVOX [Suspect]
     Indication: ENTEROCOCCAL INFECTION
     Dosage: 1200 MG (600 MG, 2 IN 1 D), ORAL
     Route: 048
     Dates: start: 20050423, end: 20050505
  2. ZOCOR [Concomitant]
  3. GLUCOPHAGE [Concomitant]
  4. AVANDIA [Concomitant]
  5. PREVACID [Concomitant]
  6. LOPRESSOR [Concomitant]
  7. GLYBURIDE [Concomitant]
  8. OXYCONTIN [Concomitant]

REACTIONS (3)
  - DEHYDRATION [None]
  - DIARRHOEA [None]
  - RECTAL HAEMORRHAGE [None]
